FAERS Safety Report 23680240 (Version 2)
Quarter: 2024Q2

REPORT INFORMATION
  Report Type: Spontaneous
  Country: US (occurrence: US)
  Receive Date: 20240327
  Receipt Date: 20240624
  Transmission Date: 20240716
  Serious: Yes (Hospitalization, Other)
  Sender: FDA-Public Use
  Company Number: US-EXELIXIS-CABO-24075396

PATIENT
  Age: 75 Year
  Sex: Male
  Weight: 96.599 kg

DRUGS (19)
  1. OPDIVO [Suspect]
     Active Substance: NIVOLUMAB
     Indication: Product used for unknown indication
  2. CABOMETYX [Suspect]
     Active Substance: CABOZANTINIB S-MALATE
     Indication: Renal cell carcinoma
     Dosage: 40 MG, QD
     Route: 048
     Dates: start: 202311
  3. LENVIMA [Suspect]
     Active Substance: LENVATINIB
     Indication: Renal cell carcinoma
     Dosage: UNK
  4. LENVIMA [Suspect]
     Active Substance: LENVATINIB
     Dosage: EVERY OTHER DAY
  5. ALBUTEROL SULFATE [Concomitant]
     Active Substance: ALBUTEROL SULFATE
     Indication: Product used for unknown indication
  6. PREDNISONE [Concomitant]
     Active Substance: PREDNISONE
     Indication: Product used for unknown indication
  7. MIRALAX [Concomitant]
     Active Substance: POLYETHYLENE GLYCOL 3350
     Indication: Product used for unknown indication
  8. NARCAN [Concomitant]
     Active Substance: NALOXONE HYDROCHLORIDE
     Indication: Product used for unknown indication
  9. OXYCODONE [Concomitant]
     Active Substance: OXYCODONE\OXYCODONE HYDROCHLORIDE
     Indication: Product used for unknown indication
  10. MELATONIN [Concomitant]
     Active Substance: MELATONIN
     Indication: Product used for unknown indication
  11. ONDANSETRON [Concomitant]
     Active Substance: ONDANSETRON
     Indication: Product used for unknown indication
  12. MARINOL [Concomitant]
     Active Substance: DRONABINOL
     Indication: Product used for unknown indication
  13. ALLOPURINOL [Concomitant]
     Active Substance: ALLOPURINOL
     Indication: Product used for unknown indication
  14. FERROUS SULFATE [Concomitant]
     Active Substance: FERROUS SULFATE
     Indication: Product used for unknown indication
  15. AMLODIPINE [Concomitant]
     Active Substance: AMLODIPINE BESYLATE
     Indication: Product used for unknown indication
  16. METOPROLOL [Concomitant]
     Active Substance: METOPROLOL
     Indication: Product used for unknown indication
  17. ACETAMINOPHEN [Concomitant]
     Active Substance: ACETAMINOPHEN
     Indication: Product used for unknown indication
  18. FAMOTIDINE [Concomitant]
     Active Substance: FAMOTIDINE
     Indication: Product used for unknown indication
  19. CALCIUM\VITAMIN D [Concomitant]
     Active Substance: CALCIUM\VITAMIN D
     Indication: Product used for unknown indication

REACTIONS (5)
  - Acute kidney injury [Recovered/Resolved]
  - Pyrexia [Recovering/Resolving]
  - Gait disturbance [Recovering/Resolving]
  - Blood pressure decreased [Recovering/Resolving]
  - Skin ulcer [Recovering/Resolving]

NARRATIVE: CASE EVENT DATE: 20240201
